FAERS Safety Report 8129762-7 (Version None)
Quarter: 2012Q1

REPORT INFORMATION
  Report Type: 
  Country: None (occurrence: None)
  Receive Date: 20120103
  Receipt Date: 20110923
  Transmission Date: 20120608
  Serious: No
  Sender: FDA-Public Use
  Company Number: AE-2011-001133

PATIENT
  Age: 55 Year
  Sex: Female
  Weight: 99.3377 kg

DRUGS (13)
  1. METFORMIN HCL [Concomitant]
  2. DIOVAN HCT 320/12.5MG (CO-DIOVAN) [Concomitant]
  3. TEKTURNA (ANTIHYPERTENSIVES) [Concomitant]
  4. FLUOXETINE [Concomitant]
  5. ESTRADIOL [Concomitant]
  6. COREG [Concomitant]
  7. LISINOPRIL [Concomitant]
  8. INCIVEK [Suspect]
     Dosage: 2250 MG (750 MG, 3 IN 1 D), ORAL
     Route: 048
     Dates: start: 20110808, end: 20110824
  9. PEGASYS [Concomitant]
  10. RIBAVIRIN [Concomitant]
  11. GLUCOTROL [Concomitant]
  12. LYRICA [Concomitant]
  13. NEXIUM [Concomitant]

REACTIONS (6)
  - CHILLS [None]
  - HYPERHIDROSIS [None]
  - RASH PRURITIC [None]
  - ANORECTAL DISCOMFORT [None]
  - INFLUENZA LIKE ILLNESS [None]
  - PROCTALGIA [None]
